FAERS Safety Report 5014198-8 (Version None)
Quarter: 2006Q2

REPORT INFORMATION
  Report Type: 
  Country: None (occurrence: None)
  Receive Date: 20060414
  Receipt Date: 20051219
  Transmission Date: 20061013
  Serious: No
  Sender: FDA-Public Use
  Company Number: 2005SP004461

PATIENT
  Age: 57 Year
  Sex: Male
  Weight: 101.6057 kg

DRUGS (4)
  1. LUNESTA [Suspect]
     Indication: MIDDLE INSOMNIA
     Dosage: 2 MG;1X;ORAL
     Route: 048
     Dates: start: 20051215, end: 20051215
  2. MELATONIN [Concomitant]
  3. PROSCAR [Concomitant]
  4. ALPHA LIPOIC ACID [Concomitant]

REACTIONS (4)
  - ABDOMINAL PAIN UPPER [None]
  - CONSTIPATION [None]
  - FAECES DISCOLOURED [None]
  - VOMITING [None]
